FAERS Safety Report 5117993-X (Version None)
Quarter: 2006Q3

REPORT INFORMATION
  Report Type: 
  Country: None (occurrence: None)
  Receive Date: 20060926
  Receipt Date: 20060913
  Transmission Date: 20061208
  Serious: Yes (Hospitalization)
  Sender: FDA-Public Use
  Company Number: 2006052823

PATIENT
  Age: 49 Year
  Sex: Female

DRUGS (9)
  1. NITROGLYCERIN [Suspect]
     Dosage: 10 MG, INTRADERMAL
     Route: 023
  2. DILTIAZEM [Suspect]
     Dosage: 300 MG (300 MG) ORAL
     Route: 048
  3. SALBUTAMOL (SALBUTAMOL) [Suspect]
     Indication: ASTHMA
  4. LASIX [Suspect]
     Indication: ESSENTIAL HYPERTENSION
     Dosage: 40 MG (40 MG, 1 IN 1 D) ORAL
     Route: 048
  5. SERETIDE DISKUS (FLUTICASONE PROPIONATE, SALMETEROL XINAFOATE) [Suspect]
     Indication: ASTHMA
  6. EZETROL (EZETIMIBE) [Suspect]
     Indication: HYPERCHOLESTEROLAEMIA
     Dosage: 10 MG (10 MG, 1 IN 1 D) ORAL
     Route: 048
     Dates: start: 20050901, end: 20060204
  7. ZOLPIDEM TARTRATE [Suspect]
     Indication: SLEEP DISORDER
     Dosage: ORAL
     Route: 048
  8. KARDEGIC (ACETYLSALICYLIC LYSINE) [Concomitant]
  9. DAFALGAN (PARACETAMOL) [Concomitant]

REACTIONS (4)
  - BLOOD CREATINE PHOSPHOKINASE INCREASED [None]
  - CONDITION AGGRAVATED [None]
  - MYALGIA [None]
  - RENAL IMPAIRMENT [None]
